FAERS Safety Report 19959546 (Version 1)
Quarter: 2021Q4

REPORT INFORMATION
  Report Type: Spontaneous
  Country: US (occurrence: US)
  Receive Date: 20211012
  Receipt Date: 20211012
  Transmission Date: 20220303
  Serious: Yes (Death)
  Sender: FDA-Public Use
  Company Number: None

PATIENT
  Age: 60 Year
  Sex: Male

DRUGS (12)
  1. REVLIMID [Suspect]
     Active Substance: LENALIDOMIDE
     Indication: Plasma cell myeloma
     Route: 048
     Dates: start: 20210506, end: 20210809
  2. VELCADE [Concomitant]
     Active Substance: BORTEZOMIB
  3. DEXAMETHASONE [Concomitant]
     Active Substance: DEXAMETHASONE
  4. OXYCODONE [Concomitant]
     Active Substance: OXYCODONE
  5. ACYCLOVIR [Concomitant]
     Active Substance: ACYCLOVIR
  6. CALCIUM ACETATE [Concomitant]
     Active Substance: CALCIUM ACETATE
  7. OXIDE [Concomitant]
  8. SENNOSIDES [Concomitant]
     Active Substance: SENNOSIDES
  9. BISACODYL [Concomitant]
     Active Substance: BISACODYL
  10. PROTONIX [Concomitant]
     Active Substance: PANTOPRAZOLE SODIUM
  11. DEXTRAN SULFATE SODIUM [Concomitant]
     Active Substance: DEXTRAN SULFATE SODIUM
  12. APAP [Concomitant]
     Active Substance: ACETAMINOPHEN

REACTIONS (11)
  - Cytopenia [None]
  - Neutropenia [None]
  - Thrombocytopenia [None]
  - Sepsis [None]
  - Osteomyelitis [None]
  - Urosepsis [None]
  - Bacteraemia [None]
  - Back pain [None]
  - Osteomyelitis [None]
  - Ureterolithiasis [None]
  - Anaemia [None]

NARRATIVE: CASE EVENT DATE: 20210822
